FAERS Safety Report 12426814 (Version 2)
Quarter: 2016Q2

REPORT INFORMATION
  Report Type: Report from Study
  Country: US (occurrence: US)
  Receive Date: 20160601
  Receipt Date: 20160606
  Transmission Date: 20160815
  Serious: Yes (Hospitalization)
  Sender: FDA-Public Use
  Company Number: US-ACTELION-A-US2015-127217

PATIENT
  Age: 44 Year
  Sex: Female

DRUGS (3)
  1. SILDENAFIL. [Concomitant]
     Active Substance: SILDENAFIL
  2. VELETRI [Suspect]
     Active Substance: EPOPROSTENOL
     Indication: PULMONARY HYPERTENSION
     Dosage: 28.5 NG/KG, PER MIN
     Route: 042
     Dates: start: 20141208
  3. WARFARIN [Concomitant]
     Active Substance: WARFARIN

REACTIONS (13)
  - Sinus disorder [Unknown]
  - Pain in extremity [Unknown]
  - Pain in jaw [Unknown]
  - Headache [Unknown]
  - Malaise [Unknown]
  - Diarrhoea [Unknown]
  - Weight decreased [Unknown]
  - Clostridium difficile infection [Unknown]
  - Neuropathy peripheral [Unknown]
  - Vomiting [Unknown]
  - Blood potassium decreased [Unknown]
  - Dehydration [Unknown]
  - Blood potassium increased [Unknown]
